FAERS Safety Report 4367888-4 (Version None)
Quarter: 2004Q2

REPORT INFORMATION
  Report Type: 
  Country: None (occurrence: None)
  Receive Date: 20040601
  Receipt Date: 20040601
  Transmission Date: 20050107
  Serious: Yes (Life-Threatening)
  Sender: FDA-Public Use
  Company Number: None

PATIENT
  Age: 73 Year
  Sex: Male
  Weight: 111.1313 kg

DRUGS (1)
  1. VERSED [Suspect]
     Dates: start: 19960419, end: 19960419

REACTIONS (2)
  - ASTHENIA [None]
  - MEDICATION ERROR [None]
